FAERS Safety Report 8776207 (Version 2)
Quarter: 2013Q4

REPORT INFORMATION
  Report Type: Spontaneous
  Country: US (occurrence: US)
  Receive Date: 20120910
  Receipt Date: 20131101
  Transmission Date: 20140711
  Serious: No
  Sender: FDA-Public Use
  Company Number: US-009507513-1208USA011935

PATIENT
  Sex: Female

DRUGS (3)
  1. CLARITIN [Suspect]
     Indication: THROAT IRRITATION
     Dosage: UNK, UNKNOWN
     Route: 048
  2. CLARITIN [Suspect]
     Indication: EYE PRURITUS
  3. CLARITIN [Suspect]
     Indication: LACRIMATION INCREASED

REACTIONS (1)
  - Pruritus [Unknown]
